FAERS Safety Report 9531932 (Version 1)
Quarter: 2013Q3

REPORT INFORMATION
  Report Type: Spontaneous
  Country: BR (occurrence: BR)
  Receive Date: 20130918
  Receipt Date: 20130918
  Transmission Date: 20140515
  Serious: Yes (Hospitalization)
  Sender: FDA-Public Use
  Company Number: BR-TAKEDA-THQ2013A04488

PATIENT
  Sex: 0

DRUGS (8)
  1. ATACAND [Suspect]
     Dosage: 8 MG, BID
     Route: 048
     Dates: start: 2005
  2. SELOZOK [Suspect]
     Dosage: 50 MG, QD
     Route: 048
     Dates: start: 2003
  3. CRESTOR [Suspect]
     Dosage: UNK UNK, QD
     Route: 048
     Dates: start: 201304
  4. CRESTOR [Suspect]
     Dosage: 10 MG, QD
     Route: 048
     Dates: start: 201304, end: 2013
  5. CRESTOR [Suspect]
     Dosage: 2 DF, QD
     Route: 048
  6. CRESTOR [Suspect]
     Dosage: 20 MG, QD
     Route: 048
     Dates: start: 2013
  7. BRILINTA [Suspect]
     Route: 048
     Dates: start: 201304
  8. ASPIRINA PREVENT [Concomitant]
     Dosage: UNK
     Dates: start: 201304

REACTIONS (4)
  - Chest pain [Recovering/Resolving]
  - Heart rate increased [Recovering/Resolving]
  - Dyspnoea [Recovering/Resolving]
  - Off label use [Not Recovered/Not Resolved]
